FAERS Safety Report 9767717 (Version 1)
Quarter: 2013Q4

REPORT INFORMATION
  Report Type: Spontaneous
  Country: US (occurrence: US)
  Receive Date: 20131217
  Receipt Date: 20131217
  Transmission Date: 20140711
  Serious: Yes (Death, Other)
  Sender: FDA-Public Use
  Company Number: US-GILEAD-2013-0089899

PATIENT
  Age: 74 Year
  Sex: Female

DRUGS (8)
  1. LETAIRIS [Suspect]
     Indication: PRODUCT USED FOR UNKNOWN INDICATION
     Dosage: 10 MG, QD
     Route: 048
     Dates: start: 20081126, end: 20131201
  2. IRON [Concomitant]
  3. TUMS                               /00193601/ [Concomitant]
  4. CALCITROL                          /00508501/ [Concomitant]
  5. SINGULAIR [Concomitant]
  6. CARDIZEM                           /00489701/ [Concomitant]
  7. ZANTAC [Concomitant]
  8. BENZONATATE [Concomitant]

REACTIONS (1)
  - Death [Fatal]
